FAERS Safety Report 16044182 (Version 3)
Quarter: 2020Q1

REPORT INFORMATION
  Report Type: Report from Study
  Country: US (occurrence: US)
  Receive Date: 20190306
  Receipt Date: 20200127
  Transmission Date: 20200409
  Serious: Yes (Death, Hospitalization)
  Sender: FDA-Public Use
  Company Number: US-ACTELION-A-NJ2019-187119

PATIENT
  Age: 64 Year
  Sex: Female

DRUGS (2)
  1. TREPROSTINIL. [Concomitant]
     Active Substance: TREPROSTINIL
     Dosage: 2 NG/KG, PER MIN
     Route: 042
     Dates: end: 20190820
  2. OPSUMIT [Suspect]
     Active Substance: MACITENTAN
     Indication: PULMONARY ARTERIAL HYPERTENSION
     Dosage: 10 MG
     Route: 048
     Dates: start: 20150203, end: 20191231

REACTIONS (3)
  - Death [Fatal]
  - Pneumonia [Recovered/Resolved]
  - Palliative care [Unknown]

NARRATIVE: CASE EVENT DATE: 20190209
